FAERS Safety Report 4297696-4 (Version None)
Quarter: 2004Q1

REPORT INFORMATION
  Report Type: 
  Country: None (occurrence: None)
  Receive Date: 20040217
  Receipt Date: 20040217
  Transmission Date: 20041129
  Serious: Yes (Life-Threatening)
  Sender: FDA-Public Use
  Company Number: None

PATIENT
  Age: 48 Year
  Sex: Female
  Weight: 95.709 kg

DRUGS (2)
  1. ZYVOX [Suspect]
     Indication: GLYCOPEPTIDE ANTIBIOTIC RESISTANT ENTEROCOCCAL INFECTION
     Dosage: 600 MG Q12H INTRAVENOUS
     Route: 042
     Dates: start: 20040121, end: 20040130
  2. ZOLOFT [Suspect]
     Indication: DEPRESSION
     Dosage: 125 MG QD ORAL
     Route: 048
     Dates: start: 20031111, end: 20040121

REACTIONS (12)
  - BLOOD PRESSURE ABNORMAL [None]
  - CARDIO-RESPIRATORY ARREST [None]
  - COMA [None]
  - CONFUSIONAL STATE [None]
  - COORDINATION ABNORMAL [None]
  - DIARRHOEA [None]
  - DRUG INTERACTION [None]
  - HEART RATE ABNORMAL [None]
  - HYPERTENSION [None]
  - MYOCLONUS [None]
  - SEROTONIN SYNDROME [None]
  - TACHYCARDIA [None]
